FAERS Safety Report 6157446-3 (Version None)
Quarter: 2009Q2

REPORT INFORMATION
  Report Type: 
  Country: None (occurrence: None)
  Receive Date: 20090416
  Receipt Date: 20090328
  Transmission Date: 20091009
  Serious: Yes (Other)
  Sender: FDA-Public Use
  Company Number: TR-B.I. PHARMACEUTICALS,INC./RIDGEFIELD-2009-BP-04750YA

PATIENT
  Age: 44 Year
  Sex: Male

DRUGS (2)
  1. TAMSULOSIN HCL [Suspect]
     Route: 048
  2. CIPROFLOXACIN [Concomitant]

REACTIONS (3)
  - CHOROIDAL DETACHMENT [None]
  - CONJUNCTIVAL OEDEMA [None]
  - MYOPIA [None]
